FAERS Safety Report 5018015-1 (Version None)
Quarter: 2006Q2

REPORT INFORMATION
  Report Type: 
  Country: None (occurrence: None)
  Receive Date: 20060605
  Receipt Date: 20051202
  Transmission Date: 20061013
  Serious: Yes (Hospitalization)
  Sender: FDA-Public Use
  Company Number: US-AVENTIS-200520127US

PATIENT
  Sex: Female
  Weight: 89 kg

DRUGS (13)
  1. LANTUS [Suspect]
     Dosage: DOSE UNIT: UNITS
     Route: 058
     Dates: start: 20050601
  2. LANTUS [Suspect]
     Dosage: DOSE UNIT: UNITS
  3. OPTICLIK (INSULIN INJECTION PEN) [Suspect]
     Dates: start: 20050601
  4. OPTICLIK (INSULIN INJECTION PEN) [Suspect]
  5. HUMALOG [Concomitant]
     Dosage: DOSE: SLIDING SCALE; FREQUENCY: BEFORE MEALS
     Route: 058
  6. TOPROL-XL [Concomitant]
     Dosage: DOSE: UNK
  7. HYZAAR [Concomitant]
     Dosage: DOSE: UNK
  8. LIPITOR [Concomitant]
     Dosage: DOSE: UNK
  9. ZOLOFT [Concomitant]
     Dosage: DOSE: UNK
  10. PLAVIX [Concomitant]
     Dosage: DOSE: UNK
  11. GLUCOTROL [Concomitant]
     Dosage: DOSE: UNK
  12. ASPIRIN [Concomitant]
     Dosage: DOSE: UNK
  13. TRICOR [Concomitant]
     Dosage: DOSE: UNK

REACTIONS (7)
  - BLOOD GLUCOSE INCREASED [None]
  - CORONARY ARTERY OCCLUSION [None]
  - INJECTION SITE BRUISING [None]
  - INJECTION SITE EXTRAVASATION [None]
  - INJECTION SITE PAIN [None]
  - PAIN IN EXTREMITY [None]
  - PHARMACEUTICAL PRODUCT COMPLAINT [None]
